FAERS Safety Report 7624897-7 (Version None)
Quarter: 2011Q3

REPORT INFORMATION
  Report Type: 
  Country: None (occurrence: None)
  Receive Date: 20110720
  Receipt Date: 20110714
  Transmission Date: 20111222
  Serious: Yes (Hospitalization, Other)
  Sender: FDA-Public Use
  Company Number: US-MERCK-1012USA00178

PATIENT
  Age: 51 Year
  Sex: Female
  Weight: 69 kg

DRUGS (13)
  1. VITAMINS (UNSPECIFIED) [Concomitant]
     Route: 065
  2. SYNTHROID [Concomitant]
     Indication: HYPERTHYROIDISM
     Route: 048
     Dates: end: 20090401
  3. FOSAMAX [Suspect]
     Indication: OSTEOPOROSIS
     Route: 048
     Dates: start: 20040107, end: 20090401
  4. FOSAMAX [Suspect]
     Route: 048
     Dates: start: 20010801
  5. CALCIUM (UNSPECIFIED) [Concomitant]
     Route: 065
  6. VITAMIN D (UNSPECIFIED) [Concomitant]
     Route: 065
  7. FOSAMAX [Suspect]
     Route: 048
     Dates: start: 19980122, end: 20000101
  8. AVAPRO [Concomitant]
     Route: 065
  9. GLUMETZA [Concomitant]
     Route: 065
  10. AMARYL [Concomitant]
     Route: 065
  11. SUCEE [Concomitant]
     Route: 065
     Dates: start: 19900101
  12. ACTOS [Concomitant]
     Route: 065
  13. FOSAMAX [Suspect]
     Route: 048
     Dates: start: 20010523, end: 20010701

REACTIONS (18)
  - LIGAMENT RUPTURE [None]
  - ADVERSE EVENT [None]
  - LOSS OF CONSCIOUSNESS [None]
  - OSTEOARTHRITIS [None]
  - LOW TURNOVER OSTEOPATHY [None]
  - PAIN [None]
  - LIGAMENT SPRAIN [None]
  - MUSCLE RUPTURE [None]
  - BONE DISORDER [None]
  - TENDONITIS [None]
  - METATARSALGIA [None]
  - FRACTURE NONUNION [None]
  - FALL [None]
  - EXOSTOSIS [None]
  - ACCESSORY NAVICULAR SYNDROME [None]
  - OSTEOPENIA [None]
  - FEMUR FRACTURE [None]
  - DIZZINESS [None]
